FAERS Safety Report 7072194-3 (Version None)
Quarter: 2010Q4

REPORT INFORMATION
  Report Type: 
  Country: None (occurrence: None)
  Receive Date: 20101029
  Receipt Date: 20091216
  Transmission Date: 20110411
  Serious: No
  Sender: FDA-Public Use
  Company Number: A0835428A

PATIENT
  Age: 82 Year
  Sex: Female

DRUGS (3)
  1. ADVAIR DISKUS 100/50 [Suspect]
     Indication: ASTHMA
     Route: 055
     Dates: start: 20091101
  2. IMODIUM [Concomitant]
  3. CELEBREX [Concomitant]

REACTIONS (1)
  - FREQUENT BOWEL MOVEMENTS [None]
